FAERS Safety Report 20675495 (Version 1)
Quarter: 2022Q2

REPORT INFORMATION
  Report Type: Spontaneous
  Country: US (occurrence: None)
  Receive Date: 20220404
  Receipt Date: 20220404
  Transmission Date: 20220721
  Serious: No
  Sender: FDA-Public Use
  Company Number: None

PATIENT
  Age: 68 Year
  Sex: Female

DRUGS (1)
  1. TEMOZOLOMIDE [Suspect]
     Active Substance: TEMOZOLOMIDE
     Dosage: OTHER FREQUENCY : OTHER;?
     Route: 048
     Dates: start: 202202

REACTIONS (2)
  - Visual impairment [None]
  - Asthenia [None]

NARRATIVE: CASE EVENT DATE: 20220307
